FAERS Safety Report 4682188-0 (Version None)
Quarter: 2005Q2

REPORT INFORMATION
  Report Type: 
  Country: None (occurrence: None)
  Receive Date: 20050603
  Receipt Date: 20050603
  Transmission Date: 20051028
  Serious: Yes (Hospitalization)
  Sender: FDA-Public Use
  Company Number: None

PATIENT
  Age: 71 Year
  Sex: Male
  Weight: 77.7 kg

DRUGS (16)
  1. FLUNISOLIDE [Suspect]
     Indication: RHINITIS ALLERGIC
     Dosage: 2 SPRAYS EACH NOSTRIL BID
     Route: 045
     Dates: start: 20041201, end: 20050501
  2. BRIMONIDE TARTRATE [Concomitant]
  3. OMEPRAZOLE [Concomitant]
  4. SIMVASTATIN [Concomitant]
  5. AMOXICILLIN [Concomitant]
  6. FLUNISOLIDE [Concomitant]
  7. FOLIC ACID [Concomitant]
  8. TRAVOPROST [Concomitant]
  9. METOPROLOL TARTRATE [Concomitant]
  10. OMEPRAZOLE [Concomitant]
  11. ASPIRIN [Concomitant]
  12. BRIMONIDINE [Concomitant]
  13. METOPROLOL [Concomitant]
  14. SODIUM CHLORIDE [Concomitant]
  15. TEMAZEPAM [Concomitant]
  16. ACETAMINOPHEN [Concomitant]

REACTIONS (1)
  - EPISTAXIS [None]
